FAERS Safety Report 24697397 (Version 1)
Quarter: 2024Q4

REPORT INFORMATION
  Report Type: Spontaneous
  Country: US (occurrence: US)
  Receive Date: 20241204
  Receipt Date: 20241204
  Transmission Date: 20250115
  Serious: No
  Sender: PAREXEL
  Company Number: US-STEMLINE THERAPEUTICS, INC-2024-STML-US005598

PATIENT

DRUGS (1)
  1. ORSERDU [Suspect]
     Active Substance: ELACESTRANT
     Indication: Product used for unknown indication
     Dosage: 400 MG, CYCLIC (DAY 1 OF 28DAY CYCLE)
     Route: 065
     Dates: start: 20240801, end: 20241001

REACTIONS (1)
  - Paranoia [Not Recovered/Not Resolved]
